FAERS Safety Report 18490131 (Version 1)
Quarter: 2020Q4

REPORT INFORMATION
  Report Type: Spontaneous
  Country: IE (occurrence: IE)
  Receive Date: 20201111
  Receipt Date: 20201111
  Transmission Date: 20210114
  Serious: Yes (Death, Hospitalization)
  Sender: FDA-Public Use
  Company Number: NVSC2020IE298131

PATIENT
  Age: 56 Year
  Sex: Female

DRUGS (1)
  1. PIQRAY [Suspect]
     Active Substance: ALPELISIB
     Indication: PRODUCT USED FOR UNKNOWN INDICATION
     Dosage: 300 MG
     Route: 048
     Dates: start: 201908

REACTIONS (3)
  - Hyperglycaemia [Recovered/Resolved]
  - Disease progression [Fatal]
  - Blood ketone body [Recovered/Resolved]

NARRATIVE: CASE EVENT DATE: 20191010
